FAERS Safety Report 11391433 (Version 1)
Quarter: 2015Q3

REPORT INFORMATION
  Report Type: Spontaneous
  Country: US (occurrence: None)
  Receive Date: 20150814
  Receipt Date: 20150814
  Transmission Date: 20151125
  Serious: No
  Sender: FDA-Public Use
  Company Number: None

PATIENT
  Age: 41 Year
  Sex: Female
  Weight: 88.45 kg

DRUGS (5)
  1. CYMBALTA [Suspect]
     Active Substance: DULOXETINE HYDROCHLORIDE
     Indication: DEPRESSION
     Route: 048
  2. VITAMIN D [Concomitant]
     Active Substance: CHOLECALCIFEROL
  3. VITAMIN B [Concomitant]
     Active Substance: VITAMIN B
  4. CALCIUM [Concomitant]
     Active Substance: CALCIUM
  5. SYNTHROID [Concomitant]
     Active Substance: LEVOTHYROXINE SODIUM

REACTIONS (5)
  - Fatigue [None]
  - Gastrointestinal disorder [None]
  - Nausea [None]
  - Drug withdrawal syndrome [None]
  - Paraesthesia [None]

NARRATIVE: CASE EVENT DATE: 20150601
